FAERS Safety Report 9543421 (Version 2)
Quarter: 2013Q3

REPORT INFORMATION
  Report Type: Report from Study
  Country: US (occurrence: US)
  Receive Date: 20130923
  Receipt Date: 20130930
  Transmission Date: 20140515
  Serious: Yes (Death)
  Sender: FDA-Public Use
  Company Number: US-ACTELION-A-NJ2013-88448

PATIENT
  Age: 76 Year
  Sex: Male

DRUGS (10)
  1. TRACLEER [Suspect]
     Indication: PULMONARY ARTERIAL HYPERTENSION
     Dosage: UNK
     Route: 048
     Dates: start: 20130212
  2. SILDENAFIL [Concomitant]
     Dosage: 20 MG, UNK
  3. PLAVIX [Concomitant]
  4. WELCHOL [Concomitant]
  5. SINEMET [Concomitant]
  6. OXYBUTYNIN [Concomitant]
  7. SYNTHROID [Concomitant]
  8. EFFEXOR [Concomitant]
  9. ASA [Concomitant]
  10. ARICEPT [Concomitant]

REACTIONS (1)
  - Death [Fatal]
